FAERS Safety Report 7872561-1 (Version None)
Quarter: 2011Q4

REPORT INFORMATION
  Report Type: 
  Country: None (occurrence: None)
  Receive Date: 20111030
  Receipt Date: 20110428
  Transmission Date: 20120403
  Serious: No
  Sender: FDA-Public Use
  Company Number: US-AMGEN-USASP2011022287

PATIENT
  Age: 20 Year
  Sex: Female

DRUGS (1)
  1. ENBREL [Suspect]
     Indication: JUVENILE ARTHRITIS
     Dosage: 50 MG, QWK
     Dates: start: 20090215, end: 20100101

REACTIONS (7)
  - INFECTION [None]
  - MUSCULOSKELETAL STIFFNESS [None]
  - JOINT LOCK [None]
  - OEDEMA PERIPHERAL [None]
  - RESPIRATORY TRACT INFECTION [None]
  - ABASIA [None]
  - PAIN IN EXTREMITY [None]
